FAERS Safety Report 17167312 (Version 1)
Quarter: 2019Q4

REPORT INFORMATION
  Report Type: Spontaneous
  Country: CN (occurrence: CN)
  Receive Date: 20191217
  Receipt Date: 20191217
  Transmission Date: 20200122
  Serious: Yes (Other)
  Sender: FDA-Public Use
  Company Number: CN-BAXTER-2019BAX025274

PATIENT
  Age: 49 Year
  Sex: Male
  Weight: 53 kg

DRUGS (10)
  1. PIPERACILLIN AND TAZOBACTAM [Suspect]
     Active Substance: PIPERACILLIN SODIUM\TAZOBACTAM SODIUM
     Dosage: DOSE RE-INTRODUCED
     Route: 041
  2. 20% MANNITOL INJECTION [Suspect]
     Active Substance: MANNITOL
     Indication: SWELLING
     Route: 041
     Dates: start: 20191110, end: 20191127
  3. SODIUM CHLORIDE. [Suspect]
     Active Substance: SODIUM CHLORIDE
     Dosage: VEHICLE FOR ALPROSTADIL INJECTION?DOSE RE-INTRODUCED
     Route: 040
  4. SODIUM CHLORIDE. [Suspect]
     Active Substance: SODIUM CHLORIDE
     Dosage: VEHICLE FOR PIPERACILLIN SODIUM AND TAZOBACTAM SODIUM FOR INJECTION?DOSE RE-INTRODUCED
     Route: 041
  5. ALPROSTADIL. [Suspect]
     Active Substance: ALPROSTADIL
     Dosage: DOSE RE-INTRODUCED
     Route: 040
  6. 20% MANNITOL INJECTION [Suspect]
     Active Substance: MANNITOL
     Dosage: DOSE RE-INTRODUCED
     Route: 041
  7. SODIUM CHLORIDE. [Suspect]
     Active Substance: SODIUM CHLORIDE
     Indication: VEHICLE SOLUTION USE
     Dosage: VEHICLE FOR ALPROSTADIL INJECTION
     Route: 040
     Dates: start: 20191110, end: 20191127
  8. ALPROSTADIL. [Suspect]
     Active Substance: ALPROSTADIL
     Indication: CARDIOVASCULAR DISORDER
     Route: 040
     Dates: start: 20191110, end: 20191127
  9. PIPERACILLIN AND TAZOBACTAM [Suspect]
     Active Substance: PIPERACILLIN SODIUM\TAZOBACTAM SODIUM
     Indication: WOUND INFECTION
     Route: 041
     Dates: start: 20191110, end: 20191127
  10. SODIUM CHLORIDE. [Suspect]
     Active Substance: SODIUM CHLORIDE
     Indication: VEHICLE SOLUTION USE
     Dosage: VEHICLE FOR PIPERACILLIN SODIUM AND TAZOBACTAM SODIUM FOR INJECTION
     Route: 041
     Dates: start: 20191110, end: 20191127

REACTIONS (2)
  - Rash erythematous [Recovering/Resolving]
  - Rash pruritic [Recovering/Resolving]

NARRATIVE: CASE EVENT DATE: 20191126
